FAERS Safety Report 5533467-6 (Version None)
Quarter: 2007Q4

REPORT INFORMATION
  Report Type: 
  Country: None (occurrence: None)
  Receive Date: 20071204
  Receipt Date: 20071126
  Transmission Date: 20080405
  Serious: Yes (Hospitalization)
  Sender: FDA-Public Use
  Company Number: US-ELI_LILLY_AND_COMPANY-US200711005585

PATIENT
  Sex: Female

DRUGS (13)
  1. FORTEO [Suspect]
     Dosage: UNK, UNK
     Dates: start: 20070526
  2. LIDODERM [Concomitant]
  3. AMBIEN [Concomitant]
  4. CALCIUM MAGNESIUM /01412301/ [Concomitant]
  5. DURAGESIC-100 [Concomitant]
  6. MAALOX [Concomitant]
  7. METAMUCIL [Concomitant]
  8. NEURONTIN [Concomitant]
  9. PERCOCET [Concomitant]
  10. PROTONIX [Concomitant]
  11. REGLAN [Concomitant]
  12. ROBAXIN [Concomitant]
  13. TOPROL-XL [Concomitant]

REACTIONS (1)
  - SPINAL COMPRESSION FRACTURE [None]
